FAERS Safety Report 5103892-6 (Version None)
Quarter: 2006Q3

REPORT INFORMATION
  Report Type: 
  Country: None (occurrence: None)
  Receive Date: 20060911
  Receipt Date: 20060830
  Transmission Date: 20061208
  Serious: Yes (Other)
  Sender: FDA-Public Use
  Company Number: 2006106255

PATIENT
  Age: 18 Year
  Sex: Male

DRUGS (2)
  1. DOXYCYCLINE [Suspect]
     Indication: ACNE
     Dosage: 100 MG (100 MG), ORAL
     Route: 048
     Dates: start: 20051115, end: 20060203
  2. ADAPALENE (ADAPALENE) [Concomitant]

REACTIONS (2)
  - CHEST PAIN [None]
  - OESOPHAGEAL ULCER [None]
